FAERS Safety Report 15208844 (Version 1)
Quarter: 2018Q3

REPORT INFORMATION
  Report Type: Spontaneous
  Country: US (occurrence: US)
  Receive Date: 20180629
  Receipt Date: 20180629
  Transmission Date: 20181010
  Serious: No
  Sender: FDA-Public Use
  Company Number: None

PATIENT
  Age: 79 Year
  Sex: Female
  Weight: 57.15 kg

DRUGS (2)
  1. IBRANCE [Suspect]
     Active Substance: PALBOCICLIB
     Indication: BREAST CANCER FEMALE
     Route: 048
     Dates: start: 20161012, end: 20180628
  2. IBRANCE [Concomitant]
     Active Substance: PALBOCICLIB
     Dates: start: 20161012, end: 20180628

REACTIONS (1)
  - White blood cell count decreased [None]
